FAERS Safety Report 6737911-8 (Version None)
Quarter: 2010Q2

REPORT INFORMATION
  Report Type: 
  Country: None (occurrence: None)
  Receive Date: 20100524
  Receipt Date: 20100514
  Transmission Date: 20101027
  Serious: Yes (Hospitalization)
  Sender: FDA-Public Use
  Company Number: PHHO2010US02518

PATIENT
  Sex: Female
  Weight: 92.426 kg

DRUGS (12)
  1. AFINITOR [Suspect]
     Indication: GLIOBLASTOMA MULTIFORME
     Dosage: 10 MG, DAILY
     Dates: start: 20090827, end: 20100323
  2. AVASTIN [Suspect]
     Indication: GLIOBLASTOMA MULTIFORME
     Dosage: 812 MG, 82 WEEKS
     Route: 042
     Dates: start: 20090520, end: 20100323
  3. TEMOZOLOMIDE [Suspect]
     Indication: GLIOBLASTOMA MULTIFORME
     Dosage: UNK
     Dates: end: 20100323
  4. KEPPRA [Concomitant]
     Dosage: UNK
     Dates: start: 20090409
  5. LORAZEPAM [Concomitant]
     Dosage: UNK
     Dates: start: 20090415
  6. PEPCID [Concomitant]
     Dosage: UNK
     Dates: start: 20090409
  7. DECADRON [Concomitant]
     Dosage: UNK
     Dates: start: 20090409
  8. CITALOPRAM [Concomitant]
     Dosage: UNK
     Dates: start: 20090409
  9. CALAN - SLOW RELEASE [Concomitant]
     Dosage: UNK
     Dates: start: 20100128
  10. DEPAKOTE [Concomitant]
     Dosage: UNK
     Dates: start: 20090812
  11. METOPROLOL TARTRATE [Concomitant]
     Dosage: UNK
     Dates: start: 20090819
  12. ARIXTRA [Concomitant]

REACTIONS (15)
  - ATELECTASIS [None]
  - BRAIN OEDEMA [None]
  - CONFUSIONAL STATE [None]
  - CONVULSION [None]
  - DIZZINESS [None]
  - DYSPNOEA [None]
  - DYSSTASIA [None]
  - GENERAL PHYSICAL HEALTH DETERIORATION [None]
  - HYPOTENSION [None]
  - LUNG INFILTRATION [None]
  - MALIGNANT NEOPLASM PROGRESSION [None]
  - MENTAL STATUS CHANGES [None]
  - PNEUMONIA [None]
  - RHABDOMYOLYSIS [None]
  - TACHYCARDIA [None]
